FAERS Safety Report 8337694-4 (Version None)
Quarter: 2012Q2

REPORT INFORMATION
  Report Type: 
  Country: None (occurrence: None)
  Receive Date: 20120504
  Receipt Date: 20120425
  Transmission Date: 20120825
  Serious: Yes (Hospitalization)
  Sender: FDA-Public Use
  Company Number: FR-JNJFOC-20120412546

PATIENT
  Age: 40 Year
  Sex: Male

DRUGS (3)
  1. REMICADE [Suspect]
     Indication: PSORIASIS
     Route: 042
     Dates: start: 20120416, end: 20120416
  2. REMICADE [Suspect]
     Route: 042
  3. REMICADE [Suspect]
     Route: 042
     Dates: start: 20120401

REACTIONS (6)
  - TYPE I HYPERSENSITIVITY [None]
  - CHEST PAIN [None]
  - RESPIRATORY DISORDER [None]
  - TACHYCARDIA [None]
  - RASH [None]
  - INFUSION RELATED REACTION [None]
